FAERS Safety Report 25080253 (Version 2)
Quarter: 2025Q2

REPORT INFORMATION
  Report Type: Report from Study
  Country: US (occurrence: US)
  Receive Date: 20250314
  Receipt Date: 20250404
  Transmission Date: 20250717
  Serious: Yes (Death, Hospitalization)
  Sender: ABBVIE
  Company Number: US-ABBVIE-6173192

PATIENT
  Age: 77 Year
  Sex: Male
  Weight: 169 kg

DRUGS (13)
  1. VENCLEXTA [Suspect]
     Active Substance: VENETOCLAX
     Indication: Acute myeloid leukaemia
     Route: 048
     Dates: start: 202308, end: 202409
  2. VENCLEXTA [Suspect]
     Active Substance: VENETOCLAX
     Indication: Acute myeloid leukaemia
     Route: 048
     Dates: start: 202502, end: 202502
  3. BUPROPION [Concomitant]
     Active Substance: BUPROPION
     Indication: Depression
  4. LOSARTAN [Concomitant]
     Active Substance: LOSARTAN
     Indication: Blood pressure management
  5. MOUNJARO [Concomitant]
     Active Substance: TIRZEPATIDE
     Indication: Diabetes mellitus
  6. BACTRIM [Concomitant]
     Active Substance: SULFAMETHOXAZOLE\TRIMETHOPRIM
     Indication: Infection prophylaxis
  7. PRAMIPEXOLE [Concomitant]
     Active Substance: PRAMIPEXOLE
     Indication: Product used for unknown indication
  8. GABAPENTIN [Concomitant]
     Active Substance: GABAPENTIN
     Indication: Restless legs syndrome
  9. BUMEX [Concomitant]
     Active Substance: BUMETANIDE
     Indication: Urinary tract disorder
  10. MELATONIN [Concomitant]
     Active Substance: MELATONIN
     Indication: Sleep disorder therapy
  11. PANTOPRAZOLE [Concomitant]
     Active Substance: PANTOPRAZOLE
     Indication: Gastrooesophageal reflux disease
  12. COVID-19 Vaccination [Concomitant]
     Indication: COVID-19 immunisation
     Route: 030
     Dates: start: 2023, end: 2023
  13. INFLUENZA VIRUS VACCINE [Concomitant]
     Active Substance: INFLUENZA VIRUS VACCINE
     Indication: Influenza immunisation
     Dates: start: 2023, end: 2023

REACTIONS (10)
  - Acute respiratory failure [Fatal]
  - Cholecystitis infective [Recovered/Resolved]
  - Lymphoedema [Not Recovered/Not Resolved]
  - Sepsis [Unknown]
  - Sleep apnoea syndrome [Recovering/Resolving]
  - Anger [Unknown]
  - Delusional disorder, unspecified type [Unknown]
  - Gait inability [Recovering/Resolving]
  - Loss of personal independence in daily activities [Unknown]
  - Leukaemia [Fatal]

NARRATIVE: CASE EVENT DATE: 20240901
